FAERS Safety Report 6233494-X (Version None)
Quarter: 2009Q2

REPORT INFORMATION
  Report Type: 
  Country: None (occurrence: None)
  Receive Date: 20090617
  Receipt Date: 20090126
  Transmission Date: 20091009
  Serious: Yes (Hospitalization)
  Sender: FDA-Public Use
  Company Number: US-PFIZER INC-2009155615

PATIENT
  Sex: Female
  Weight: 68.481 kg

DRUGS (3)
  1. BLINDED PREGABALIN [Suspect]
     Indication: EPILEPSY
     Dosage: UNK, INTERVAL: DAILY
     Route: 048
     Dates: start: 20081117, end: 20081229
  2. KEPPRA [Concomitant]
     Dosage: UNK
     Route: 048
     Dates: start: 20060314
  3. DEPAKOTE [Concomitant]
     Dosage: UNK
     Route: 048
     Dates: start: 20010315, end: 20081207

REACTIONS (1)
  - EPILEPSY [None]
